FAERS Safety Report 5958647-7 (Version None)
Quarter: 2008Q4

REPORT INFORMATION
  Report Type: 
  Country: None (occurrence: None)
  Receive Date: 20081119
  Receipt Date: 20081107
  Transmission Date: 20090506
  Serious: Yes (Hospitalization)
  Sender: FDA-Public Use
  Company Number: PT-PFIZER INC-2008095097

PATIENT
  Sex: Female

DRUGS (10)
  1. LYRICA [Suspect]
     Indication: FIBROMYALGIA
     Route: 048
     Dates: start: 20070601
  2. LASIX [Concomitant]
     Route: 048
  3. TENORMIN [Concomitant]
  4. KAINEVER [Concomitant]
     Route: 048
  5. VALIUM [Concomitant]
     Route: 048
  6. DIGASSIM [Concomitant]
     Route: 048
  7. TRYPTIZOL [Concomitant]
     Route: 048
  8. DAFLON [Concomitant]
     Route: 048
  9. CLONIX [Concomitant]
     Route: 048
  10. NEURONTIN [Concomitant]
     Route: 048

REACTIONS (3)
  - CHEST PAIN [None]
  - HYPOAESTHESIA [None]
  - PARALYSIS [None]
